FAERS Safety Report 8323149-X (Version None)
Quarter: 2012Q2

REPORT INFORMATION
  Report Type: 
  Country: None (occurrence: None)
  Receive Date: 20120430
  Receipt Date: 20120426
  Transmission Date: 20120825
  Serious: Yes (Hospitalization)
  Sender: FDA-Public Use
  Company Number: US-B.I. PHARMACEUTICALS,INC./RIDGEFIELD-2012-BP-09566BP

PATIENT
  Sex: Female

DRUGS (10)
  1. SPIRIVA [Suspect]
     Indication: BRONCHITIS CHRONIC
     Dosage: 18 MCG
     Route: 055
     Dates: start: 20120126
  2. OXYCODONE HCL [Concomitant]
     Indication: PAIN
  3. LYRICA [Concomitant]
     Indication: PAIN
  4. SYMBICORT [Concomitant]
     Indication: BRONCHITIS CHRONIC
  5. ALBUTEROL [Concomitant]
     Indication: BRONCHITIS CHRONIC
  6. SINGULAIR [Concomitant]
     Indication: BRONCHITIS CHRONIC
  7. CALCIUM [Concomitant]
     Indication: MINERAL SUPPLEMENTATION
  8. CELEBREX [Concomitant]
     Indication: OSTEOARTHRITIS
  9. FLEXERIL [Concomitant]
     Indication: PAIN
  10. VITAMIN D [Concomitant]
     Indication: VITAMIN SUPPLEMENTATION

REACTIONS (1)
  - PNEUMONIA [None]
